FAERS Safety Report 19682297 (Version 3)
Quarter: 2021Q3

REPORT INFORMATION
  Report Type: Report from Study
  Country: US (occurrence: US)
  Receive Date: 20210810
  Receipt Date: 20210916
  Transmission Date: 20211014
  Serious: Yes (Other)
  Sender: FDA-Public Use
  Company Number: US-SHIRE-US201928994

PATIENT
  Sex: Female
  Weight: 104 kg

DRUGS (37)
  1. VICTOZA [Concomitant]
     Active Substance: LIRAGLUTIDE
  2. SINGULAIR [Concomitant]
     Active Substance: MONTELUKAST SODIUM
  3. MAGNESIUM OXIDE. [Concomitant]
     Active Substance: MAGNESIUM OXIDE
  4. XOPENEX [Concomitant]
     Active Substance: LEVALBUTEROL HYDROCHLORIDE
  5. CUVITRU [Suspect]
     Active Substance: HUMAN IMMUNOGLOBULIN G
     Indication: IMMUNODEFICIENCY COMMON VARIABLE
  6. MELATONIN [Concomitant]
     Active Substance: MELATONIN
  7. ALVESCO [Concomitant]
     Active Substance: CICLESONIDE
  8. BENADRYL [Concomitant]
     Active Substance: DIPHENHYDRAMINE HYDROCHLORIDE
  9. EPINEPHRINE. [Concomitant]
     Active Substance: EPINEPHRINE
  10. NASONEX [Concomitant]
     Active Substance: MOMETASONE FUROATE
  11. MULTIVITAMINS [Concomitant]
     Active Substance: VITAMINS
  12. VITAMIN D3 [Concomitant]
     Active Substance: CHOLECALCIFEROL
  13. BIOTIN [Concomitant]
     Active Substance: BIOTIN
  14. VITAMIN B COMPLEX [Concomitant]
     Active Substance: CYANOCOBALAMIN\DEXPANTHENOL\NIACINAMIDE\PYRIDOXINE HYDROCHLORIDE\RIBOFLAVIN 5^-PHOSPHATE SODIUM\THIAMINE HYDROCHLORIDE\VITAMIN B COMPLEX
  15. DIPHENHYDRAMINE. [Concomitant]
     Active Substance: DIPHENHYDRAMINE
  16. LIDOCAINE. [Concomitant]
     Active Substance: LIDOCAINE
  17. TAMOXIFEN [Concomitant]
     Active Substance: TAMOXIFEN
  18. DILTIAZEM. [Concomitant]
     Active Substance: DILTIAZEM
  19. SPIRONOLACTONE. [Concomitant]
     Active Substance: SPIRONOLACTONE
  20. MUCINEX [Concomitant]
     Active Substance: GUAIFENESIN
  21. KETOCONAZOLE. [Concomitant]
     Active Substance: KETOCONAZOLE
  22. OPTIVE SENSITIVE [Concomitant]
  23. LEVEMIR [Concomitant]
     Active Substance: INSULIN DETEMIR
  24. RESTASIS [Concomitant]
     Active Substance: CYCLOSPORINE
  25. SALINE [Concomitant]
     Active Substance: SODIUM CHLORIDE
  26. NASALCROM A [Concomitant]
  27. BENAZEPRIL AND HYDROCHLOROTHIAZIDE [Concomitant]
     Active Substance: BENAZEPRIL HYDROCHLORIDE\HYDROCHLOROTHIAZIDE
  28. CUVITRU [Suspect]
     Active Substance: HUMAN IMMUNOGLOBULIN G
     Indication: PRIMARY IMMUNODEFICIENCY SYNDROME
     Dosage: 10 GRAM, 1/WEEK
     Route: 058
     Dates: start: 20170810
  29. ACETAMINOPHEN AND CODEINE [Concomitant]
     Active Substance: ACETAMINOPHEN\CODEINE PHOSPHATE
  30. NOVOLOG [Concomitant]
     Active Substance: INSULIN ASPART
  31. IPRATROPIUM BROMIDE. [Concomitant]
     Active Substance: IPRATROPIUM BROMIDE
  32. ZYRTEC [Concomitant]
     Active Substance: CETIRIZINE HYDROCHLORIDE
  33. ACETAMINOPHEN. [Concomitant]
     Active Substance: ACETAMINOPHEN
  34. PRILOCAINE [Concomitant]
     Active Substance: PRILOCAINE
  35. PATANASE [Concomitant]
     Active Substance: OLOPATADINE HYDROCHLORIDE
  36. FIBER LAX [Concomitant]
     Active Substance: CALCIUM POLYCARBOPHIL
  37. LOVAZA [Concomitant]
     Active Substance: OMEGA-3-ACID ETHYL ESTERS

REACTIONS (11)
  - Breast cancer [Unknown]
  - Hypoacusis [Unknown]
  - Rash [Unknown]
  - Pyrexia [Unknown]
  - Incorrect dose administered [Unknown]
  - Dyspnoea [Unknown]
  - Device leakage [Unknown]
  - Multiple allergies [Unknown]
  - Nervousness [Unknown]
  - Pruritus [Unknown]
  - Blood glucose decreased [Unknown]
